FAERS Safety Report 20897136 (Version 2)
Quarter: 2022Q2

REPORT INFORMATION
  Report Type: Spontaneous
  Country: US (occurrence: US)
  Receive Date: 20220531
  Receipt Date: 20220615
  Transmission Date: 20220720
  Serious: No
  Sender: FDA-Public Use
  Company Number: US-PFIZER INC-202200756747

PATIENT
  Age: 29 Year
  Sex: Female
  Weight: 139.68 kg

DRUGS (12)
  1. PAXLOVID [Suspect]
     Active Substance: NIRMATRELVIR\RITONAVIR
     Indication: COVID-19 treatment
     Dosage: 100 MG, 3X/DAY(3 PILLS OF 100MG EACH)
     Dates: start: 20220524, end: 20220524
  2. TYLENOL 8HR [Concomitant]
     Active Substance: ACETAMINOPHEN
     Dosage: UNK
  3. PLEXUS [AMBROXOL HYDROCHLORIDE;DEXTROMETHORPHAN HYDROBROMIDE] [Concomitant]
     Dosage: UNK
  4. VICKS SINEX NASAL [Concomitant]
     Dosage: UNK
     Dates: start: 20220523
  5. SINGULAIR [Concomitant]
     Active Substance: MONTELUKAST SODIUM
     Indication: Asthma
     Dosage: UNK
  6. TRI-ESTARYLLA [Concomitant]
     Active Substance: ETHINYL ESTRADIOL\NORGESTIMATE
     Indication: Contraception
     Dosage: 1 DF, DAILY
  7. SERTRALINE [Concomitant]
     Active Substance: SERTRALINE HYDROCHLORIDE
     Dosage: 100 MG, DAILY
  8. FLO [Concomitant]
     Dosage: UNK
  9. CETIRIZINE HYDROCHLORIDE [Concomitant]
     Active Substance: CETIRIZINE HYDROCHLORIDE
     Dosage: UNK
  10. NASONEX [Concomitant]
     Active Substance: MOMETASONE FUROATE
     Dosage: UNK
  11. ZOLOFT [Concomitant]
     Active Substance: SERTRALINE HYDROCHLORIDE
     Dosage: 100 MG, DAILY
  12. PANTOPRAZOLE [Concomitant]
     Active Substance: PANTOPRAZOLE
     Dosage: 40 MG, DAILY

REACTIONS (2)
  - Incorrect dose administered [Unknown]
  - Vomiting projectile [Unknown]

NARRATIVE: CASE EVENT DATE: 20220524
